FAERS Safety Report 8029710-4 (Version None)
Quarter: 2012Q1

REPORT INFORMATION
  Report Type: 
  Country: None (occurrence: None)
  Receive Date: 20120104
  Receipt Date: 20111222
  Transmission Date: 20120608
  Serious: Yes (Death)
  Sender: FDA-Public Use
  Company Number: DSA_48630_2011

PATIENT
  Age: 51 Year
  Sex: Male

DRUGS (5)
  1. DILTIAZEM [Suspect]
     Dosage: (DF ORAL)
     Route: 048
  2. ETHANOL [Suspect]
     Dosage: (DF ORAL)
     Route: 048
  3. CITALOPRAM [Suspect]
     Dosage: (DF ORAL)
     Route: 048
  4. CLONAZEPAM [Suspect]
     Dosage: (DF ORAL)
     Route: 048
  5. QUETIAPINE FUMARATE [Suspect]
     Dosage: (DF ORAL)
     Route: 048

REACTIONS (3)
  - COMPLETED SUICIDE [None]
  - TOXICITY TO VARIOUS AGENTS [None]
  - INTENTIONAL DRUG MISUSE [None]
